FAERS Safety Report 19895063 (Version 1)
Quarter: 2021Q3

REPORT INFORMATION
  Report Type: Spontaneous
  Country: US (occurrence: US)
  Receive Date: 20210928
  Receipt Date: 20210928
  Transmission Date: 20211014
  Serious: No
  Sender: FDA-Public Use
  Company Number: None

PATIENT
  Age: 40 Year
  Sex: Female

DRUGS (1)
  1. ICATIBANT ACETATE ++ SYR (3?PA 30MG/ML TEVA PHARMACEUTICALS USA [Suspect]
     Active Substance: ICATIBANT ACETATE
     Indication: COMPLEMENT DEFICIENCY DISEASE
     Route: 058
     Dates: start: 20210420

REACTIONS (2)
  - Therapeutic product effect incomplete [None]
  - Therapy cessation [None]

NARRATIVE: CASE EVENT DATE: 20210926
